FAERS Safety Report 4286490-6 (Version None)
Quarter: 2004Q1

REPORT INFORMATION
  Report Type: 
  Country: None (occurrence: None)
  Receive Date: 20040204
  Receipt Date: 20040120
  Transmission Date: 20041129
  Serious: Yes (Death, Hospitalization)
  Sender: FDA-Public Use
  Company Number: USA-2004-0012616

PATIENT
  Age: 45 Year
  Sex: Female

DRUGS (9)
  1. OXYCODONE HCL [Suspect]
     Indication: PAIN
     Dosage: 10 MG, BID,
  2. MS CONTIN [Suspect]
     Indication: PAIN
     Dosage: 15 MG, DAILY,
  3. GEMCITABINE (GEMCITABINE) [Suspect]
     Indication: BREAST CANCER
     Dosage: 1300 MG, SEE TEXT,
  4. NEXIUM [Suspect]
     Dosage: 40 MG, DAILY,
  5. LEVAQUIN [Suspect]
     Dosage: SEE TEXT,
  6. CARBOPLATIN [Suspect]
     Indication: BREAST CANCER
     Dosage: 450 MG, SEE TEXT,
  7. SOLU-MEDROL [Concomitant]
  8. PHENERGAN [Concomitant]
  9. PHYTONADIONE [Concomitant]

REACTIONS (27)
  - AMMONIA INCREASED [None]
  - ANAEMIA [None]
  - ASCITES [None]
  - ASTERIXIS [None]
  - CACHEXIA [None]
  - CHOLESTASIS [None]
  - COMA HEPATIC [None]
  - CONSTIPATION [None]
  - FATIGUE [None]
  - HEPATIC FAILURE [None]
  - HEPATIC NECROSIS [None]
  - HEPATIC STEATOSIS [None]
  - HEPATOCELLULAR DAMAGE [None]
  - HYPERCALCAEMIA [None]
  - HYPOKALAEMIA [None]
  - HYPONATRAEMIA [None]
  - JAUNDICE [None]
  - MARKEDLY REDUCED DIETARY INTAKE [None]
  - METASTASES TO BONE [None]
  - METASTASES TO LIVER [None]
  - NAUSEA [None]
  - PITTING OEDEMA [None]
  - PLEURAL EFFUSION [None]
  - TACHYCARDIA [None]
  - THROMBOCYTOPENIA [None]
  - VOMITING [None]
  - WEIGHT DECREASED [None]
